FAERS Safety Report 18392080 (Version 1)
Quarter: 2020Q4

REPORT INFORMATION
  Report Type: Spontaneous
  Country: US (occurrence: US)
  Receive Date: 20201016
  Receipt Date: 20201016
  Transmission Date: 20210114
  Serious: No
  Sender: FDA-Public Use
  Company Number: US-SUNOVION-2020SUN002982

PATIENT
  Age: 63 Year
  Sex: Female

DRUGS (1)
  1. LUNESTA [Suspect]
     Active Substance: ESZOPICLONE
     Dosage: 2 MG
     Route: 048

REACTIONS (1)
  - Chemotherapy [Unknown]
